FAERS Safety Report 10039185 (Version 2)
Quarter: 2014Q1

REPORT INFORMATION
  Report Type: Spontaneous
  Country: DK (occurrence: DK)
  Receive Date: 20140326
  Receipt Date: 20140331
  Transmission Date: 20141002
  Serious: Yes (Hospitalization)
  Sender: FDA-Public Use
  Company Number: DK-JNJFOC-20140311664

PATIENT
  Age: 79 Year
  Sex: Male
  Weight: 60 kg

DRUGS (8)
  1. XARELTO [Suspect]
     Indication: CEREBROVASCULAR ACCIDENT PROPHYLAXIS
     Route: 048
     Dates: start: 20131204, end: 20131223
  2. XARELTO [Suspect]
     Indication: ATRIAL FIBRILLATION
     Route: 048
     Dates: start: 20131204, end: 20131223
  3. ATORVASTATIN CALCIUM [Concomitant]
     Indication: HYPERCHOLESTEROLAEMIA
     Route: 065
  4. BETOLVEX [Concomitant]
     Indication: VITAMIN B COMPLEX DEFICIENCY
     Route: 065
  5. METOPROLOL SUCCINATE [Concomitant]
     Indication: ANGINA PECTORIS
     Route: 065
  6. HUMANT TETANUS IMMUNGLOBULIN [Concomitant]
     Indication: INFECTION PROPHYLAXIS
     Route: 065
  7. FUROSEMID [Concomitant]
     Route: 065
  8. IMDUR [Concomitant]
     Indication: ANGINA PECTORIS
     Route: 065

REACTIONS (5)
  - Haematoma evacuation [Not Recovered/Not Resolved]
  - Joint swelling [Recovered/Resolved]
  - Arthralgia [Not Recovered/Not Resolved]
  - Joint swelling [Not Recovered/Not Resolved]
  - Haemarthrosis [Not Recovered/Not Resolved]
